FAERS Safety Report 10076491 (Version 1)
Quarter: 2014Q2

REPORT INFORMATION
  Report Type: Spontaneous
  Country: US (occurrence: US)
  Receive Date: 20140414
  Receipt Date: 20140414
  Transmission Date: 20141212
  Serious: No
  Sender: FDA-Public Use
  Company Number: US-BAYER-2014-054684

PATIENT
  Age: 72 Year
  Sex: Female
  Weight: 81.18 kg

DRUGS (3)
  1. ALEVE CAPLET [Suspect]
     Indication: ARTHRITIS
     Dosage: 1 DF, ONCE
     Route: 048
     Dates: start: 20140409
  2. CINNAMON [Concomitant]
  3. VITAMIN D [Concomitant]

REACTIONS (1)
  - Restlessness [Not Recovered/Not Resolved]
